FAERS Safety Report 22892232 (Version 6)
Quarter: 2024Q2

REPORT INFORMATION
  Report Type: Other
  Country: CA (occurrence: None)
  Receive Date: 20230901
  Receipt Date: 20240501
  Transmission Date: 20240715
  Serious: No
  Sender: FDA-Public Use
  Company Number: CA-ROCHE-2887792

PATIENT
  Age: 26 Year
  Sex: Female

DRUGS (2)
  1. OCREVUS [Suspect]
     Active Substance: OCRELIZUMAB
     Indication: Relapsing-remitting multiple sclerosis
     Dosage: THEN 600 MG EVERY 6 MONTH
     Route: 042
     Dates: start: 20210730
  2. OCREVUS [Suspect]
     Active Substance: OCRELIZUMAB
     Route: 042
     Dates: start: 20220203

REACTIONS (4)
  - Infusion related reaction [Recovered/Resolved]
  - Infusion related reaction [Recovered/Resolved]
  - COVID-19 [Unknown]
  - Fatigue [Unknown]

NARRATIVE: CASE EVENT DATE: 20210730
